FAERS Safety Report 4335298-1 (Version None)
Quarter: 2004Q2

REPORT INFORMATION
  Report Type: 
  Country: None (occurrence: None)
  Receive Date: 20040408
  Receipt Date: 20040408
  Transmission Date: 20050107
  Serious: Yes (Life-Threatening, Hospitalization)
  Sender: FDA-Public Use
  Company Number: None

PATIENT
  Age: 61 Year
  Sex: Male
  Weight: 81.8 kg

DRUGS (15)
  1. CEFEPIME [Suspect]
     Indication: FEBRILE NEUTROPENIA
     Dosage: 1 GM Q 8 HRS
     Dates: start: 20040108, end: 20040117
  2. CEFEPIME [Suspect]
     Dosage: 1 GRAM Q 12 HR
     Dates: start: 20040117, end: 20040119
  3. DIPHENHYDRAMINE HCL [Concomitant]
  4. ACETAMINOPHEN [Concomitant]
  5. FLUDARABINE PHOSPHATE [Concomitant]
  6. MEPERIDINE HCL [Concomitant]
  7. MESNA [Concomitant]
  8. CYCLOPHOSPHAMIDE [Concomitant]
  9. MAGNESIUM SULFATE [Concomitant]
  10. HYDROCORTISONE [Concomitant]
  11. FUROSEMIDE ONDANSETRON [Concomitant]
  12. LORAZEPAM [Concomitant]
  13. METHOTREXATE [Concomitant]
  14. CYCLOSPORINE [Concomitant]
  15. ALTEPLASE [Concomitant]

REACTIONS (3)
  - DRUG ERUPTION [None]
  - GRAFT VERSUS HOST DISEASE [None]
  - RENAL IMPAIRMENT [None]
